FAERS Safety Report 21385370 (Version 1)
Quarter: 2022Q3

REPORT INFORMATION
  Report Type: Other
  Country: CN (occurrence: None)
  Receive Date: 20220928
  Receipt Date: 20220928
  Transmission Date: 20221027
  Serious: Yes (Other)
  Sender: FDA-Public Use
  Company Number: CN-ROCHE-3188909

PATIENT

DRUGS (1)
  1. RITUXIMAB [Suspect]
     Active Substance: RITUXIMAB
     Indication: Anti-neutrophil cytoplasmic antibody positive vasculitis
     Route: 041

REACTIONS (5)
  - Pneumonia [Recovering/Resolving]
  - Haemophilus infection [Recovering/Resolving]
  - Pseudomonas infection [Recovering/Resolving]
  - Pneumonia viral [Recovering/Resolving]
  - Off label use [Unknown]
